FAERS Safety Report 6042270-2 (Version None)
Quarter: 2009Q1

REPORT INFORMATION
  Report Type: 
  Country: None (occurrence: None)
  Receive Date: 20090116
  Receipt Date: 20090112
  Transmission Date: 20090719
  Serious: Yes (Hospitalization)
  Sender: FDA-Public Use
  Company Number: ZA-PFIZER INC-2008099087

PATIENT

DRUGS (2)
  1. BLINDED *PLACEBO [Suspect]
     Dosage: 1 UNK, 2X/DAY
     Route: 048
     Dates: start: 20080923
  2. BLINDED VARENICLINE TARTRATE [Suspect]
     Dosage: 1 UNK, 2X/DAY
     Route: 048
     Dates: start: 20080923

REACTIONS (1)
  - OVERDOSE [None]
